FAERS Safety Report 9135364 (Version 1)
Quarter: 2013Q1

REPORT INFORMATION
  Report Type: Spontaneous
  Country: TW (occurrence: TW)
  Receive Date: 20130304
  Receipt Date: 20130304
  Transmission Date: 20140127
  Serious: Yes (Other)
  Sender: FDA-Public Use
  Company Number: TW-MYLANLABS-2013S1003904

PATIENT
  Age: 86 Year
  Sex: Male

DRUGS (12)
  1. CLONAZEPAM [Suspect]
     Route: 048
  2. ESCITALOPRAM [Concomitant]
     Dosage: 10MG AT BEDTIME
     Route: 048
  3. RISPERIDONE [Concomitant]
     Dosage: 1MG AT BEDTIME
     Route: 048
  4. DIPYRIDAMOLE [Concomitant]
     Route: 048
  5. FLUNARIZINE [Concomitant]
     Dosage: 5MG AT BEDTIME
     Route: 048
  6. LEVOFLOXACIN [Concomitant]
     Route: 048
  7. DOXYCYCLINE [Concomitant]
     Route: 048
  8. DIPHENHYDRAMINE [Concomitant]
     Route: 042
  9. METHYLPREDNISOLONE [Concomitant]
     Route: 065
  10. AMIODARONE [Concomitant]
     Route: 048
  11. FUROSEMIDE [Concomitant]
     Route: 042
  12. CEFTAZIDIME [Concomitant]
     Indication: LOBAR PNEUMONIA
     Route: 042

REACTIONS (1)
  - Dermatitis bullous [Recovering/Resolving]
